FAERS Safety Report 7820538-4 (Version None)
Quarter: 2011Q4

REPORT INFORMATION
  Report Type: 
  Country: None (occurrence: None)
  Receive Date: 20111018
  Receipt Date: 20111004
  Transmission Date: 20120403
  Serious: Yes (Other)
  Sender: FDA-Public Use
  Company Number: PHHY2011EC90153

PATIENT
  Sex: Male

DRUGS (2)
  1. DIOVAN HCT [Suspect]
     Indication: HYPERTENSION
     Dosage: 1 DF, DAILY
     Route: 048
     Dates: start: 20060628
  2. LYRICA [Concomitant]
     Indication: NEURALGIA
     Dates: start: 20090701, end: 20100401

REACTIONS (3)
  - PROSTATOMEGALY [None]
  - HERPES ZOSTER [None]
  - TESTIS CANCER [None]
